FAERS Safety Report 7518028 (Version 2)
Quarter: 2013Q2

REPORT INFORMATION
  Report Type: Report from Study
  Country: DE (occurrence: DE)
  Receive Date: 20100802
  Receipt Date: 20130509
  Transmission Date: 20140414
  Serious: Yes (Hospitalization, Other)
  Sender: FDA-Public Use
  Company Number: DE-JNJFOC-20100707505

PATIENT
  Age: 4 Decade
  Sex: Female
  Weight: 24.04 kg

DRUGS (3)
  1. REMICADE [Suspect]
     Indication: CROHN^S DISEASE
     Route: 042
     Dates: start: 20080107
  2. REMICADE [Suspect]
     Indication: CROHN^S DISEASE
     Route: 042
     Dates: start: 20080207, end: 20080207
  3. HUMIRA [Suspect]
     Indication: CROHN^S DISEASE
     Dates: start: 200802, end: 200807

REACTIONS (2)
  - Dyshidrotic eczema [Not Recovered/Not Resolved]
  - Drug hypersensitivity [Unknown]
